FAERS Safety Report 5291994-3 (Version None)
Quarter: 2007Q2

REPORT INFORMATION
  Report Type: 
  Country: None (occurrence: None)
  Receive Date: 20070406
  Receipt Date: 20070406
  Transmission Date: 20071010
  Serious: Yes (Life-Threatening)
  Sender: FDA-Public Use
  Company Number: None

PATIENT
  Age: 72 Year
  Sex: Female
  Weight: 40 kg

DRUGS (16)
  1. TEMOZOLOMIDE 75 MG/M2 [Suspect]
     Indication: GLIOBLASTOMA
     Dosage: 105 MG PO QD
     Route: 048
     Dates: start: 20061226, end: 20070207
  2. PTK787/222584 [Suspect]
     Dosage: 250 MG PO QD
     Route: 048
     Dates: start: 20061220, end: 20070207
  3. ATOLENOL [Concomitant]
  4. BACTRIM DS [Concomitant]
  5. CITALOPRAM HYDROBROMIDE [Concomitant]
  6. DECADRON [Concomitant]
  7. DEANCIR [Concomitant]
  8. DULCOLAX [Concomitant]
  9. LACTULOSE [Concomitant]
  10. MEGACE [Concomitant]
  11. MYCELEX [Concomitant]
  12. NEXIUM [Concomitant]
  13. SENOKOT [Concomitant]
  14. TRILEPTAL [Concomitant]
  15. ZOFRAN [Concomitant]
  16. ZYPREXA [Concomitant]

REACTIONS (13)
  - APHASIA [None]
  - ASTHENIA [None]
  - BLOOD DISORDER [None]
  - CONVULSION [None]
  - DEEP VEIN THROMBOSIS [None]
  - DRUG TOXICITY [None]
  - FATIGUE [None]
  - GAIT DISTURBANCE [None]
  - LEUKOPENIA [None]
  - MENTAL STATUS CHANGES [None]
  - NEUTROPHIL COUNT DECREASED [None]
  - OEDEMA PERIPHERAL [None]
  - THROMBOCYTOPENIA [None]
